FAERS Safety Report 17342993 (Version 1)
Quarter: 2020Q1

REPORT INFORMATION
  Report Type: Spontaneous
  Country: ES (occurrence: ES)
  Receive Date: 20200129
  Receipt Date: 20200129
  Transmission Date: 20200409
  Serious: Yes (Disabling, Other)
  Sender: FDA-Public Use
  Company Number: ES-MYLANLABS-2020M1010180

PATIENT
  Age: 56 Year
  Sex: Male

DRUGS (8)
  1. BOSENTAN. [Suspect]
     Active Substance: BOSENTAN
     Indication: PAIN
     Dosage: UNK
     Route: 065
  2. METAMIZOL                          /06276702/ [Suspect]
     Active Substance: METAMIZOLE
     Indication: PAIN
     Dosage: UNK UNK, Q8H 575 MG C / 8 HRS
     Route: 065
  3. PREGABALIN. [Suspect]
     Active Substance: PREGABALIN
     Indication: PAIN
     Dosage: UNK UNK, BID 25 MG C / 12 HRS
     Route: 065
  4. MORPHINE [Concomitant]
     Active Substance: MORPHINE
     Dosage: 10MG C/4HRS MAX
  5. PARACETAMOL [Suspect]
     Active Substance: ACETAMINOPHEN
     Indication: PAIN
     Dosage: UNK UNK, Q8H 1 GR C / 8HRS
     Route: 065
  6. ACTIQ [Suspect]
     Active Substance: FENTANYL CITRATE
     Indication: PAIN
     Dosage: UNK
     Route: 060
  7. FENTANYL. [Suspect]
     Active Substance: FENTANYL
     Indication: PAIN
     Dosage: 1 PATCH OF 100 MCGR / HR EVERY 72 HRS
     Route: 065
  8. DEXAMETHASONE. [Concomitant]
     Active Substance: DEXAMETHASONE
     Dosage: 4 MILLIGRAM

REACTIONS (8)
  - Ulcer [Unknown]
  - Paraplegia [Unknown]
  - Multiple sclerosis [Unknown]
  - Motor dysfunction [Unknown]
  - Urinary retention [Unknown]
  - Disease progression [Unknown]
  - Constipation [Unknown]
  - Paraesthesia [Unknown]
